FAERS Safety Report 10083559 (Version 1)
Quarter: 2014Q2

REPORT INFORMATION
  Report Type: Spontaneous
  Country: US (occurrence: None)
  Receive Date: 20140416
  Receipt Date: 20140416
  Transmission Date: 20141212
  Serious: Yes (Disabling)
  Sender: FDA-Public Use
  Company Number: None

PATIENT
  Age: 62 Year
  Sex: Female
  Weight: 86.18 kg

DRUGS (1)
  1. LIPITOR [Suspect]

REACTIONS (6)
  - Grip strength decreased [None]
  - Gait disturbance [None]
  - Clumsiness [None]
  - Muscle atrophy [None]
  - Fall [None]
  - Unevaluable event [None]
